FAERS Safety Report 8712158 (Version 4)
Quarter: 2013Q1

REPORT INFORMATION
  Report Type: Report from Study
  Country: JP (occurrence: JP)
  Receive Date: 20120807
  Receipt Date: 20130220
  Transmission Date: 20140127
  Serious: Yes (Hospitalization)
  Sender: FDA-Public Use
  Company Number: JP-VERTEX PHARMACEUTICALS INC.-AE-2012-011483

PATIENT
  Age: 56 Year
  Sex: Male

DRUGS (9)
  1. VX-950 (TELAPREVIR) [Suspect]
     Indication: CHRONIC HEPATITIS C
     Dosage: 2250 MG, QD
     Route: 048
     Dates: start: 20120601, end: 20120722
  2. VX-950 (TELAPREVIR) [Suspect]
     Dosage: 1500 MG, QD
     Route: 048
     Dates: start: 20120724, end: 20120724
  3. PEGINTRON [Suspect]
     Indication: CHRONIC HEPATITIS C
     Dosage: 1.5 ?G/KG, QW
     Route: 058
     Dates: start: 20120601, end: 20120720
  4. REBETOL [Suspect]
     Indication: CHRONIC HEPATITIS C
     Dosage: 800 MG, QD
     Route: 048
     Dates: start: 20120601, end: 20120722
  5. REBETOL [Suspect]
     Dosage: 800 MG, QD
     Route: 048
     Dates: start: 20120724, end: 20120724
  6. CELTECT [Concomitant]
     Dosage: 60 MG, QD
     Route: 048
     Dates: start: 20120601
  7. POLARAMINE [Concomitant]
     Dosage: 4 MG, QD
     Route: 048
     Dates: start: 20120601
  8. BRUFEN [Concomitant]
     Dosage: 200 MG, PRN
     Route: 048
     Dates: start: 20120601, end: 20120601
  9. TAKEPRON [Concomitant]
     Dosage: 15 MG, QD
     Route: 048

REACTIONS (1)
  - Erythema multiforme [Recovered/Resolved]
